FAERS Safety Report 4630872-7 (Version None)
Quarter: 2005Q2

REPORT INFORMATION
  Report Type: 
  Country: None (occurrence: None)
  Receive Date: 20050408
  Receipt Date: 20050331
  Transmission Date: 20051028
  Serious: Yes (Death)
  Sender: FDA-Public Use
  Company Number: IE-ABBOTT-05P-229-0295974-00

PATIENT
  Sex: Male

DRUGS (1)
  1. KLACID FORTE [Suspect]
     Indication: LOWER RESPIRATORY TRACT INFECTION
     Route: 048
     Dates: start: 20050104, end: 20050111

REACTIONS (1)
  - COMPLETED SUICIDE [None]
